FAERS Safety Report 12491311 (Version 1)
Quarter: 2016Q2

REPORT INFORMATION
  Report Type: Spontaneous
  Country: GB (occurrence: GB)
  Receive Date: 20160623
  Receipt Date: 20160623
  Transmission Date: 20160815
  Serious: Yes (Other)
  Sender: FDA-Public Use
  Company Number: GB-ASTRAZENECA-2016SE65942

PATIENT
  Age: 70 Year
  Sex: Male
  Weight: 150 kg

DRUGS (6)
  1. MAGNESIUM GLYCEROPHOSPHATE [Concomitant]
     Active Substance: MAGNESIUM GLYCEROPHOSPHATE
     Dates: start: 20160315
  2. METFORMIN [Concomitant]
     Active Substance: METFORMIN HYDROCHLORIDE
     Dates: start: 20150615
  3. FORXIGA [Suspect]
     Active Substance: DAPAGLIFLOZIN
     Indication: HEADACHE
     Route: 048
     Dates: start: 20160419, end: 20160523
  4. ATORVASTATIN [Concomitant]
     Active Substance: ATORVASTATIN
     Dates: start: 20150615
  5. OLMESARTAN MEDOXOMIL. [Concomitant]
     Active Substance: OLMESARTAN MEDOXOMIL
     Dates: start: 20150615
  6. ALOGLIPTIN. [Concomitant]
     Active Substance: ALOGLIPTIN
     Dosage: USE AS DIRECTED
     Dates: start: 20151218

REACTIONS (3)
  - Thirst [Recovering/Resolving]
  - Headache [Recovered/Resolved]
  - Pain [Unknown]

NARRATIVE: CASE EVENT DATE: 20160427
